FAERS Safety Report 18469878 (Version 1)
Quarter: 2020Q4

REPORT INFORMATION
  Report Type: Spontaneous
  Country: US (occurrence: US)
  Receive Date: 20201105
  Receipt Date: 20201105
  Transmission Date: 20210114
  Serious: Yes (Death, Other)
  Sender: FDA-Public Use
  Company Number: US-PURDUE-USA-2020-0172060

PATIENT
  Age: 32 Year
  Sex: Female
  Weight: 128.35 kg

DRUGS (6)
  1. OXYCONTIN [Suspect]
     Active Substance: OXYCODONE HYDROCHLORIDE
     Indication: PAIN
     Dosage: UNK
     Route: 048
  2. OXYCODONE HCL CR TABLETS (SIMILAR TO NDA 22-272) [Suspect]
     Active Substance: OXYCODONE HYDROCHLORIDE
     Indication: PAIN
     Dosage: UNK
     Route: 048
  3. OXYIR [Suspect]
     Active Substance: OXYCODONE HYDROCHLORIDE
     Indication: PAIN
     Dosage: UNK
     Route: 048
  4. FENTANYL CITRATE. [Suspect]
     Active Substance: FENTANYL CITRATE
     Indication: PRODUCT USED FOR UNKNOWN INDICATION
     Dosage: UNK
     Route: 065
  5. ALPRAZOLAM. [Suspect]
     Active Substance: ALPRAZOLAM
     Indication: PRODUCT USED FOR UNKNOWN INDICATION
     Dosage: UNK
     Route: 065
  6. OXYCODONE/ ACETAMINOPHEN TABLETS [Suspect]
     Active Substance: ACETAMINOPHEN\OXYCODONE HYDROCHLORIDE
     Indication: PAIN
     Dosage: UNK
     Route: 048

REACTIONS (14)
  - Nephrosclerosis [Fatal]
  - Drug dependence [Unknown]
  - Tooth disorder [Unknown]
  - Overdose [Fatal]
  - Maternal exposure during pregnancy [Unknown]
  - Toxicity to various agents [Fatal]
  - Toothache [Unknown]
  - Obesity [Fatal]
  - Pulmonary oedema [Fatal]
  - Cardiomegaly [Fatal]
  - Left ventricular hypertrophy [Fatal]
  - Cholelithiasis [Fatal]
  - Substance abuser [Unknown]
  - Hypertension [Fatal]

NARRATIVE: CASE EVENT DATE: 2013
